FAERS Safety Report 10755057 (Version 1)
Quarter: 2015Q1

REPORT INFORMATION
  Report Type: Spontaneous
  Country: US (occurrence: None)
  Receive Date: 20150130
  Receipt Date: 20150130
  Transmission Date: 20150721
  Serious: Yes (Other)
  Sender: FDA-Public Use
  Company Number: None

PATIENT
  Age: 34 Year
  Sex: Female
  Weight: 80.29 kg

DRUGS (2)
  1. NEUTROGENA OIL FREE ACNE WASH [Suspect]
     Active Substance: SALICYLIC ACID
     Indication: SEBORRHOEA
     Dosage: 9.1 FL OZ BOTTLE OF LIQUID
     Route: 061
     Dates: start: 201409, end: 201411
  2. NEUTROGENA OIL FREE ACNE WASH [Suspect]
     Active Substance: SALICYLIC ACID
     Indication: ACNE
     Dosage: 9.1 FL OZ BOTTLE OF LIQUID
     Route: 061
     Dates: start: 201409, end: 201411

REACTIONS (6)
  - Skin discolouration [None]
  - Product quality issue [None]
  - Drug ineffective [None]
  - Economic problem [None]
  - Skin hyperpigmentation [None]
  - Dry skin [None]
